FAERS Safety Report 7240184-3 (Version None)
Quarter: 2011Q1

REPORT INFORMATION
  Report Type: 
  Country: None (occurrence: None)
  Receive Date: 20110124
  Receipt Date: 20110111
  Transmission Date: 20110831
  Serious: Yes (Life-Threatening, Hospitalization, Other)
  Sender: FDA-Public Use
  Company Number: AU-ELI_LILLY_AND_COMPANY-AU201011002501

PATIENT

DRUGS (4)
  1. SEROQUEL [Concomitant]
     Route: 064
  2. EFFEXOR XR [Concomitant]
     Route: 064
  3. CYMBALTA [Suspect]
     Indication: DEPRESSIVE SYMPTOM
     Dosage: 60 MG, UNKNOWN
     Route: 064
     Dates: start: 20101025, end: 20101102
  4. CYMBALTA [Suspect]
     Dosage: 60 MG, UNKNOWN
     Route: 063
     Dates: start: 20101102

REACTIONS (4)
  - PREMATURE BABY [None]
  - DRUG EXPOSURE DURING PREGNANCY [None]
  - DRUG EXPOSURE VIA BREAST MILK [None]
  - NEONATAL RESPIRATORY DISTRESS SYNDROME [None]
